FAERS Safety Report 5345432-2 (Version None)
Quarter: 2007Q2

REPORT INFORMATION
  Report Type: 
  Country: None (occurrence: None)
  Receive Date: 20070426
  Receipt Date: 20070201
  Transmission Date: 20071010
  Serious: Yes (Other)
  Sender: FDA-Public Use
  Company Number: 2006-BP-14624BP

PATIENT
  Age: 57 Year
  Sex: Male

DRUGS (1)
  1. APTIVUS RITONAVIR CAPSULES (TIPRANAVIR  W/RITONAVIR) [Suspect]
     Indication: HIV INFECTION
     Dosage: TPV/RTV 500/200 MG BID (SEE TEXT, STRENGTH TPV/RTV 250MG/100MG) PO
     Route: 048

REACTIONS (1)
  - CEREBRAL HAEMORRHAGE [None]
